FAERS Safety Report 16760781 (Version 1)
Quarter: 2019Q3

REPORT INFORMATION
  Report Type: Spontaneous
  Country: US (occurrence: US)
  Receive Date: 20190712
  Receipt Date: 20190712
  Transmission Date: 20191005
  Serious: Yes (Hospitalization)
  Sender: FDA-Public Use
  Company Number: None

PATIENT
  Age: 42 Year
  Sex: Female

DRUGS (14)
  1. CAPECITABINE 500MG [Suspect]
     Active Substance: CAPECITABINE
     Indication: NEUROENDOCRINE TUMOUR
     Dosage: ?          OTHER FREQUENCY:DAYS 1-14Q28DAYS;?
     Route: 048
     Dates: start: 20190502
  2. AMTRIPTYLIN [Concomitant]
  3. MELOXICAM. [Concomitant]
     Active Substance: MELOXICAM
  4. DEXAMETHASONE. [Concomitant]
     Active Substance: DEXAMETHASONE
  5. LYRICA [Concomitant]
     Active Substance: PREGABALIN
  6. OXYCONTIN [Concomitant]
     Active Substance: OXYCODONE HYDROCHLORIDE
  7. TELEMOZOLIDE [Concomitant]
  8. CYCLOBENZAPRINE. [Concomitant]
     Active Substance: CYCLOBENZAPRINE
  9. METHOCARBAM [Concomitant]
     Active Substance: METHOCARBAMOL
  10. PATROPRAZOLE [Concomitant]
  11. OXYCODONE [Concomitant]
     Active Substance: OXYCODONE
  12. DICLOFENAC [Concomitant]
     Active Substance: DICLOFENAC
  13. ONDANSETRON [Concomitant]
     Active Substance: ONDANSETRON
  14. RELISTOR [Concomitant]
     Active Substance: METHYLNALTREXONE BROMIDE

REACTIONS (2)
  - Pain [None]
  - Confusional state [None]

NARRATIVE: CASE EVENT DATE: 2019
